FAERS Safety Report 10205152 (Version 1)
Quarter: 2014Q2

REPORT INFORMATION
  Report Type: Spontaneous
  Country: US (occurrence: None)
  Receive Date: 20140527
  Receipt Date: 20140527
  Transmission Date: 20141212
  Serious: Yes (Hospitalization)
  Sender: FDA-Public Use
  Company Number: None

PATIENT
  Age: 42 Year
  Sex: Female

DRUGS (1)
  1. MYCOPHENOLATE [Suspect]
     Indication: IMMUNOSUPPRESSION
     Route: 048
     Dates: start: 20120520, end: 20120614

REACTIONS (4)
  - Neutropenia [None]
  - Escherichia urinary tract infection [None]
  - Pyrexia [None]
  - Ureteric obstruction [None]
